FAERS Safety Report 11579028 (Version 5)
Quarter: 2016Q1

REPORT INFORMATION
  Report Type: Spontaneous
  Country: JP (occurrence: JP)
  Receive Date: 20150930
  Receipt Date: 20160216
  Transmission Date: 20160525
  Serious: Yes (Life-Threatening, Hospitalization, Other)
  Sender: FDA-Public Use
  Company Number: JP-BRISTOL-MYERS SQUIBB COMPANY-BMS-2015-031607

PATIENT
  Sex: Female
  Weight: 40 kg

DRUGS (4)
  1. SUNVEPRA [Suspect]
     Active Substance: ASUNAPREVIR
     Indication: CHRONIC HEPATITIS C
     Dosage: 100 MG, BID
     Route: 048
     Dates: start: 20150422, end: 20150430
  2. GLYCYRON                           /00466401/ [Concomitant]
     Indication: PRODUCT USED FOR UNKNOWN INDICATION
     Dosage: 1 DF, TID
     Route: 048
  3. DAKLINZA [Suspect]
     Active Substance: DACLATASVIR
     Indication: CHRONIC HEPATITIS C
     Dosage: 60 MG, QD
     Route: 048
     Dates: start: 20150422, end: 20150430
  4. URSO [Concomitant]
     Active Substance: URSODIOL
     Indication: TRANSAMINASES ABNORMAL
     Dosage: 200 MG, UNK
     Route: 048

REACTIONS (2)
  - Toxic skin eruption [Recovered/Resolved]
  - Septic shock [Recovered/Resolved]
